FAERS Safety Report 15983366 (Version 4)
Quarter: 2025Q3

REPORT INFORMATION
  Report Type: Spontaneous
  Country: EU (occurrence: EU)
  Receive Date: 20190220
  Receipt Date: 20250716
  Transmission Date: 20251021
  Serious: Yes (Other)
  Sender: AUROBINDO
  Company Number: EU-AUROBINDO-AUR-APL-2019-008587

PATIENT
  Age: 40 Year
  Sex: Female

DRUGS (7)
  1. EFAVIRENZ [Suspect]
     Active Substance: EFAVIRENZ
     Indication: HIV infection
     Route: 065
  2. ORLISTAT [Interacting]
     Active Substance: ORLISTAT
     Indication: Weight increased
     Route: 065
  3. TRUVADA [Interacting]
     Active Substance: EMTRICITABINE\TENOFOVIR DISOPROXIL FUMARATE
     Indication: HIV infection
     Route: 065
  4. ATAZANAVIR\RITONAVIR [Suspect]
     Active Substance: ATAZANAVIR\RITONAVIR
     Indication: HIV infection
     Route: 065
  5. FLUOXETINE [Concomitant]
     Active Substance: FLUOXETINE HYDROCHLORIDE
     Indication: Product used for unknown indication
     Route: 065
  6. HERBALS [Interacting]
     Active Substance: HERBALS
     Indication: Weight increased
     Dosage: 450 MILLIGRAM, TWO TIMES A DAY
     Route: 065
  7. PSEUDOEPHEDRINE [Concomitant]
     Active Substance: PSEUDOEPHEDRINE
     Indication: Product used for unknown indication
     Route: 065

REACTIONS (2)
  - Virologic failure [Recovered/Resolved]
  - Drug interaction [Recovered/Resolved]
